FAERS Safety Report 10268266 (Version 1)
Quarter: 2014Q2

REPORT INFORMATION
  Report Type: Report from Study
  Country: US (occurrence: US)
  Receive Date: 20140630
  Receipt Date: 20140630
  Transmission Date: 20141212
  Serious: Yes (Other)
  Sender: FDA-Public Use
  Company Number: US-JNJFOC-20140614718

PATIENT
  Age: 53 Year
  Sex: Female
  Weight: 90.72 kg

DRUGS (4)
  1. STELARA [Suspect]
     Indication: PSORIASIS
     Route: 058
     Dates: start: 201311
  2. STELARA [Suspect]
     Indication: PSORIASIS
     Route: 058
     Dates: start: 20140520
  3. CYMBALTA [Concomitant]
     Indication: ANXIETY
     Route: 048
     Dates: start: 2011
  4. XANAX [Concomitant]
     Indication: PALPITATIONS
     Route: 048
     Dates: start: 2011

REACTIONS (2)
  - Lymphoma [Not Recovered/Not Resolved]
  - Psoriasis [Not Recovered/Not Resolved]
